FAERS Safety Report 6392485-9 (Version None)
Quarter: 2009Q4

REPORT INFORMATION
  Report Type: 
  Country: None (occurrence: None)
  Receive Date: 20091007
  Receipt Date: 20090928
  Transmission Date: 20100525
  Serious: Yes (Other)
  Sender: FDA-Public Use
  Company Number: CA-SANOFI-SYNTHELABO-A01200910116

PATIENT
  Age: 40 Week
  Sex: Female

DRUGS (3)
  1. NITRIC OXIDE [Concomitant]
     Indication: DRUG USE FOR UNKNOWN INDICATION
     Dosage: 10 PPM TO 20 PPM
     Route: 055
  2. MILRINONE [Suspect]
     Indication: DRUG USE FOR UNKNOWN INDICATION
     Dosage: WITH NORMAL SALINE 15ML/KG
     Route: 065
  3. MILRINONE [Suspect]
     Dosage: 0.2 MG/KG/MIN
     Route: 065

REACTIONS (1)
  - INTRAVENTRICULAR HAEMORRHAGE NEONATAL [None]
